FAERS Safety Report 6660787-4 (Version None)
Quarter: 2010Q1

REPORT INFORMATION
  Report Type: 
  Country: None (occurrence: None)
  Receive Date: 20100331
  Receipt Date: 20100324
  Transmission Date: 20100710
  Serious: Yes (Life-Threatening)
  Sender: FDA-Public Use
  Company Number: JP-ROCHE-604061

PATIENT
  Age: 78 Year
  Sex: Female
  Weight: 43 kg

DRUGS (9)
  1. AVASTIN [Suspect]
     Indication: RECTAL CANCER METASTATIC
     Route: 041
     Dates: start: 20080521, end: 20081202
  2. ELPLAT [Suspect]
     Indication: RECTAL CANCER METASTATIC
     Route: 041
     Dates: start: 20080521, end: 20080101
  3. ELPLAT [Suspect]
     Dosage: NOTE: UNCERTAINTY.
     Route: 041
     Dates: start: 20080101, end: 20081202
  4. FLUOROURACIL [Suspect]
     Indication: RECTAL CANCER METASTATIC
     Route: 041
     Dates: start: 20080521, end: 20080101
  5. FLUOROURACIL [Suspect]
     Route: 041
     Dates: start: 20080101, end: 20081201
  6. FLUOROURACIL [Suspect]
     Route: 040
     Dates: start: 20080101, end: 20081202
  7. ISOVORIN [Concomitant]
     Route: 041
     Dates: start: 20080521, end: 20081202
  8. MAGMITT [Concomitant]
     Route: 048
     Dates: start: 20080526, end: 20081118
  9. MYSLEE [Concomitant]
     Dosage: TAKEN AS NEEDED.
     Route: 048
     Dates: start: 20080526, end: 20081202

REACTIONS (4)
  - GASTRIC PERFORATION [None]
  - NEUROPATHY PERIPHERAL [None]
  - SHOCK [None]
  - STOMATITIS [None]
